FAERS Safety Report 6810629-9 (Version None)
Quarter: 2010Q2

REPORT INFORMATION
  Report Type: 
  Country: None (occurrence: None)
  Receive Date: 20100625
  Receipt Date: 20100615
  Transmission Date: 20101027
  Serious: Yes (Hospitalization)
  Sender: FDA-Public Use
  Company Number: A0865667A

PATIENT
  Age: 44 Year
  Sex: Male

DRUGS (3)
  1. ASPIRIN + CAFFEINE + SALICYILAMIDE POWDER (ASPIRIN + CAFFEINE + SALICY [Suspect]
     Indication: PAIN
     Dosage: THREE TIMES PER DAY
  2. ASPIRIN + CAFFEINE + SALICYLAMIDE POWDER (ASPIRIN + CAFFEINE + SALICYI [Suspect]
     Indication: PAIN
  3. ASPIRIN + CAFFEINE POWDER (ASPIRIN + CAFFEINE) [Suspect]
     Indication: PAIN

REACTIONS (18)
  - ABDOMINAL DISTENSION [None]
  - ANAEMIA [None]
  - BACK PAIN [None]
  - CONDITION AGGRAVATED [None]
  - DIARRHOEA [None]
  - DRUG ADMINISTRATION ERROR [None]
  - DYSPEPSIA [None]
  - GASTRIC DISORDER [None]
  - GASTROENTERITIS VIRAL [None]
  - HYPOPHAGIA [None]
  - MUSCLE SPASMS [None]
  - NAUSEA [None]
  - OVERDOSE [None]
  - PROCEDURAL SITE REACTION [None]
  - PRODUCT FORMULATION ISSUE [None]
  - ULCER HAEMORRHAGE [None]
  - UNDERDOSE [None]
  - VOMITING [None]
